FAERS Safety Report 7576535-X (Version None)
Quarter: 2011Q2

REPORT INFORMATION
  Report Type: 
  Country: None (occurrence: None)
  Receive Date: 20110628
  Receipt Date: 20110624
  Transmission Date: 20111010
  Serious: No
  Sender: FDA-Public Use
  Company Number: US-TEVA-287962USA

PATIENT

DRUGS (1)
  1. COPAXONE [Suspect]

REACTIONS (1)
  - BLOOD BILIRUBIN INCREASED [None]
